FAERS Safety Report 22225441 (Version 1)
Quarter: 2023Q2

REPORT INFORMATION
  Report Type: Spontaneous
  Country: CN (occurrence: CN)
  Receive Date: 20230418
  Receipt Date: 20230418
  Transmission Date: 20230721
  Serious: Yes (Hospitalization, Other)
  Sender: FDA-Public Use
  Company Number: CN-009507513-2302CHN003436

PATIENT
  Age: 69 Year
  Sex: Male

DRUGS (11)
  1. KEYTRUDA [Suspect]
     Active Substance: PEMBROLIZUMAB
     Indication: Oesophageal squamous cell carcinoma stage IV
     Dosage: 200 MILLIGRAM. Q3W
     Dates: start: 20190509, end: 20190509
  2. KEYTRUDA [Suspect]
     Active Substance: PEMBROLIZUMAB
     Dosage: 200 MILLIGRAM. Q3W
     Dates: start: 20190601, end: 20190601
  3. KEYTRUDA [Suspect]
     Active Substance: PEMBROLIZUMAB
     Dosage: 200 MILLIGRAM. Q3W
     Dates: start: 20190623, end: 20190623
  4. KEYTRUDA [Suspect]
     Active Substance: PEMBROLIZUMAB
     Dosage: 200 MILLIGRAM. Q3W
     Dates: start: 20190715, end: 20190715
  5. KEYTRUDA [Suspect]
     Active Substance: PEMBROLIZUMAB
     Dosage: 200 MILLIGRAM. Q3W
     Dates: start: 20190806, end: 20190806
  6. KEYTRUDA [Suspect]
     Active Substance: PEMBROLIZUMAB
     Dosage: 200 MILLIGRAM. Q3W
     Dates: start: 20190827, end: 20190827
  7. KEYTRUDA [Suspect]
     Active Substance: PEMBROLIZUMAB
     Dosage: 200 MILLIGRAM, Q3W, CYCLE 8
     Dates: start: 20200307, end: 20200307
  8. KEYTRUDA [Suspect]
     Active Substance: PEMBROLIZUMAB
     Dosage: 200 MILLIGRAM, Q3W, CYCLE 18
     Dates: start: 20201105, end: 20201105
  9. KEYTRUDA [Suspect]
     Active Substance: PEMBROLIZUMAB
     Dosage: 200 MILLIGRAM, Q3W, CYCLE 19
     Dates: start: 20201125, end: 20201125
  10. CISPLATIN [Concomitant]
     Active Substance: CISPLATIN
     Dosage: 80MG/M2, UP TO 6 DOSES
  11. FLUOROURACIL [Concomitant]
     Active Substance: FLUOROURACIL
     Dosage: 800MG/M2, DAY 1-5

REACTIONS (20)
  - Myelosuppression [Unknown]
  - Diarrhoea [Unknown]
  - Malignant neoplasm progression [Unknown]
  - Gastric ulcer [Unknown]
  - Gastritis erosive [Unknown]
  - Rash [Unknown]
  - Gastrointestinal disorder [Unknown]
  - Oedema peripheral [Unknown]
  - Fatigue [Unknown]
  - Blood thyroid stimulating hormone decreased [Unknown]
  - Blood corticotrophin increased [Unknown]
  - Procalcitonin increased [Unknown]
  - Therapy partial responder [Unknown]
  - Skin exfoliation [Unknown]
  - Occult blood positive [Unknown]
  - Inappropriate schedule of product administration [Unknown]
  - Inappropriate schedule of product administration [Unknown]
  - Inappropriate schedule of product administration [Unknown]
  - Inappropriate schedule of product administration [Unknown]
  - Inappropriate schedule of product administration [Unknown]

NARRATIVE: CASE EVENT DATE: 20190101
